FAERS Safety Report 6189797-0 (Version None)
Quarter: 2009Q2

REPORT INFORMATION
  Report Type: 
  Country: None (occurrence: None)
  Receive Date: 20090514
  Receipt Date: 20090512
  Transmission Date: 20091009
  Serious: Yes (Death, Hospitalization)
  Sender: FDA-Public Use
  Company Number: AU-B.I. PHARMACEUTICALS,INC./RIDGEFIELD-2009-AU-00202AU

PATIENT
  Sex: Female

DRUGS (1)
  1. MOBIC [Suspect]

REACTIONS (1)
  - GASTROINTESTINAL HAEMORRHAGE [None]
